FAERS Safety Report 4744109-1 (Version None)
Quarter: 2005Q3

REPORT INFORMATION
  Report Type: 
  Country: None (occurrence: None)
  Receive Date: 20050812
  Receipt Date: 20050801
  Transmission Date: 20060218
  Serious: Yes (Other)
  Sender: FDA-Public Use
  Company Number: NL-JNJFOC-20050802988

PATIENT
  Sex: Male

DRUGS (9)
  1. PROPULSID [Suspect]
     Indication: DRUG USE FOR UNKNOWN INDICATION
     Route: 048
  2. NIZORAL [Interacting]
     Indication: DRUG USE FOR UNKNOWN INDICATION
     Route: 065
  3. INSULINE ACTRAPID [Concomitant]
     Dosage: CYCLICAL
     Route: 065
  4. MONOTARD [Concomitant]
     Dosage: CYCLICAL
     Route: 065
  5. VITAMIN B COMPLEX CAP [Concomitant]
     Route: 065
  6. VITAMIN B COMPLEX CAP [Concomitant]
     Route: 065
  7. VITAMIN B COMPLEX CAP [Concomitant]
     Route: 065
  8. VITAMIN B COMPLEX CAP [Concomitant]
     Route: 065
  9. VITAMIN B COMPLEX CAP [Concomitant]
     Route: 065

REACTIONS (2)
  - ARRHYTHMIA [None]
  - DRUG INTERACTION [None]
